FAERS Safety Report 10911835 (Version 2)
Quarter: 2015Q2

REPORT INFORMATION
  Report Type: Spontaneous
  Country: US (occurrence: US)
  Receive Date: 20150313
  Receipt Date: 20150413
  Transmission Date: 20150821
  Serious: Yes (Other)
  Sender: FDA-Public Use
  Company Number: US-009507513-1503USA002451

PATIENT
  Age: 46 Year
  Sex: Male

DRUGS (2)
  1. INTRON A [Suspect]
     Active Substance: INTERFERON ALFA-2B
     Indication: MALIGNANT MELANOMA
     Dosage: 20 MILLION IU INTRAVENOUSLY, UNK
     Route: 042
     Dates: start: 201412, end: 201412
  2. INTRON A [Suspect]
     Active Substance: INTERFERON ALFA-2B
     Dosage: 10 MILLION IU INJECTION THREE TIMES WEEKLY
     Route: 042
     Dates: end: 20150304

REACTIONS (2)
  - Melanoma recurrent [Not Recovered/Not Resolved]
  - Mass excision [Not Recovered/Not Resolved]

NARRATIVE: CASE EVENT DATE: 2015
